FAERS Safety Report 5968625-X (Version None)
Quarter: 2008Q4

REPORT INFORMATION
  Report Type: 
  Country: None (occurrence: None)
  Receive Date: 20081126
  Receipt Date: 20081117
  Transmission Date: 20090506
  Serious: Yes (Hospitalization)
  Sender: FDA-Public Use
  Company Number: US-MERCK-0810USA05399

PATIENT
  Age: 65 Year
  Sex: Female
  Weight: 65 kg

DRUGS (10)
  1. ZETIA [Suspect]
     Indication: HYPERTRIGLYCERIDAEMIA
     Route: 048
     Dates: end: 20081024
  2. VERAPAMIL EXTENDED-RELEASE [Concomitant]
     Indication: HYPERTENSION
     Route: 048
  3. MAXZIDE [Concomitant]
     Indication: HYPERTENSION
     Route: 048
  4. MAXZIDE [Concomitant]
     Indication: OEDEMA
     Route: 048
  5. ATENOLOL [Concomitant]
     Indication: HYPERTENSION
     Route: 048
  6. CALTRATE [Concomitant]
     Indication: OSTEOPENIA
     Route: 048
  7. CALTRATE [Concomitant]
     Indication: MINERAL SUPPLEMENTATION
     Route: 048
  8. OMEGA-3 MARINE TRIGLYCERIDES [Concomitant]
     Indication: HYPERTRIGLYCERIDAEMIA
     Route: 048
  9. AGGRENOX [Concomitant]
     Indication: CEREBROVASCULAR DISORDER
     Route: 048
  10. AGGRENOX [Concomitant]
     Indication: PROPHYLAXIS
     Route: 048

REACTIONS (7)
  - ABDOMINAL PAIN UPPER [None]
  - DECREASED APPETITE [None]
  - DEHYDRATION [None]
  - HEPATIC ENZYME INCREASED [None]
  - INFLUENZA [None]
  - NAUSEA [None]
  - VOMITING [None]
